FAERS Safety Report 16133189 (Version 8)
Quarter: 2022Q3

REPORT INFORMATION
  Report Type: Spontaneous
  Country: DE (occurrence: None)
  Receive Date: 20190329
  Receipt Date: 20220908
  Transmission Date: 20221027
  Serious: Yes (Hospitalization)
  Sender: FDA-Public Use
  Company Number: DE-KRKA-DE2019K04142SPO

PATIENT
  Age: 62 Year
  Sex: Female

DRUGS (168)
  1. RASILEZ [Suspect]
     Active Substance: ALISKIREN
     Indication: Blood pressure increased
     Dosage: NOT PROVIDED
     Dates: start: 201201, end: 2012
  2. RASILEZ [Suspect]
     Active Substance: ALISKIREN
     Indication: Cardiac failure
  3. NYSTATIN [Suspect]
     Active Substance: NYSTATIN
     Indication: Product used for unknown indication
     Dosage: NOT PROVIDED
     Dates: start: 201805, end: 2018
  4. CLINDAMYCIN HYDROCHLORIDE [Suspect]
     Active Substance: CLINDAMYCIN HYDROCHLORIDE
     Indication: Product used for unknown indication
     Dosage: NOT PROVIDED
     Dates: start: 201503, end: 2015
  5. CLINDAMYCIN HYDROCHLORIDE [Suspect]
     Active Substance: CLINDAMYCIN HYDROCHLORIDE
     Dosage: NOT PROVIDED
     Dates: start: 201503, end: 2015
  6. CLINDAMYCIN HYDROCHLORIDE [Suspect]
     Active Substance: CLINDAMYCIN HYDROCHLORIDE
     Dosage: NOT PROVIDED
     Dates: start: 201503, end: 2015
  7. CLINDAMYCIN HYDROCHLORIDE [Suspect]
     Active Substance: CLINDAMYCIN HYDROCHLORIDE
     Dosage: NOT PROVIDED
     Dates: start: 201503, end: 2015
  8. CLINDAMYCIN HYDROCHLORIDE [Suspect]
     Active Substance: CLINDAMYCIN HYDROCHLORIDE
     Dosage: NOT PROVIDED
     Dates: start: 201503, end: 2015
  9. CLINDAMYCIN HYDROCHLORIDE [Suspect]
     Active Substance: CLINDAMYCIN HYDROCHLORIDE
     Dosage: NOT PROVIDED
     Dates: start: 201503, end: 2015
  10. CLINDAMYCIN HYDROCHLORIDE [Suspect]
     Active Substance: CLINDAMYCIN HYDROCHLORIDE
     Dosage: NOT PROVIDED
     Dates: start: 20140101
  11. HYGROTON [Suspect]
     Active Substance: CHLORTHALIDONE
     Indication: Product used for unknown indication
     Dosage: NOT PROVIDED
     Dates: start: 201705, end: 2017
  12. HYGROTON [Suspect]
     Active Substance: CHLORTHALIDONE
     Dosage: NOT PROVIDED
     Dates: start: 201705, end: 2017
  13. HYGROTON [Suspect]
     Active Substance: CHLORTHALIDONE
     Dosage: NOT PROVIDED
     Dates: start: 201705, end: 2017
  14. HYGROTON [Suspect]
     Active Substance: CHLORTHALIDONE
     Dosage: NOT PROVIDED
     Dates: start: 201705, end: 2017
  15. HYGROTON [Suspect]
     Active Substance: CHLORTHALIDONE
     Dosage: NOT PROVIDED
     Dates: start: 201705, end: 2017
  16. HYGROTON [Suspect]
     Active Substance: CHLORTHALIDONE
     Dosage: NOT PROVIDED
     Dates: start: 201705, end: 2017
  17. HYGROTON [Suspect]
     Active Substance: CHLORTHALIDONE
  18. HYGROTON [Suspect]
     Active Substance: CHLORTHALIDONE
  19. HYGROTON [Suspect]
     Active Substance: CHLORTHALIDONE
  20. HYGROTON [Suspect]
     Active Substance: CHLORTHALIDONE
  21. HYGROTON [Suspect]
     Active Substance: CHLORTHALIDONE
  22. MINOXIDIL [Suspect]
     Active Substance: MINOXIDIL
     Indication: Product used for unknown indication
     Dosage: NOT PROVIDED
     Dates: start: 201707, end: 2017
  23. MINOXIDIL [Suspect]
     Active Substance: MINOXIDIL
     Dosage: NOT PROVIDED
     Dates: start: 201707, end: 2017
  24. MINOXIDIL [Suspect]
     Active Substance: MINOXIDIL
     Dosage: NOT PROVIDED
     Dates: start: 201707, end: 2017
  25. MINOXIDIL [Suspect]
     Active Substance: MINOXIDIL
     Dosage: NOT PROVIDED
     Dates: start: 201707, end: 2017
  26. MINOXIDIL [Suspect]
     Active Substance: MINOXIDIL
     Dosage: NOT PROVIDED
     Dates: start: 201707, end: 2017
  27. MINOXIDIL [Suspect]
     Active Substance: MINOXIDIL
     Dosage: NOT PROVIDED
     Dates: start: 201707, end: 2017
  28. HYDROCHLOROTHIAZIDE\VALSARTAN [Suspect]
     Active Substance: HYDROCHLOROTHIAZIDE\VALSARTAN
     Indication: Hypertension
     Dosage: NOT PROVIDED
     Dates: start: 201602
  29. IBUPROFEN [Suspect]
     Active Substance: IBUPROFEN
     Indication: Product used for unknown indication
     Dosage: NOT PROVIDED
  30. IBUPROFEN [Suspect]
     Active Substance: IBUPROFEN
     Dosage: NOT PROVIDED
     Dates: start: 201404, end: 2018
  31. IBUPROFEN [Suspect]
     Active Substance: IBUPROFEN
     Dosage: NOT PROVIDED
  32. IBUPROFEN [Suspect]
     Active Substance: IBUPROFEN
     Dosage: NOT PROVIDED
     Dates: start: 201404, end: 2018
  33. MOMETASONE [Suspect]
     Active Substance: MOMETASONE
     Indication: Product used for unknown indication
     Dosage: NOT PROVIDED
  34. MOMETASONE [Suspect]
     Active Substance: MOMETASONE
     Dosage: NOT PROVIDED
     Dates: start: 201406, end: 2014
  35. MOMETASONE [Suspect]
     Active Substance: MOMETASONE
     Dosage: NOT PROVIDED
  36. MOMETASONE [Suspect]
     Active Substance: MOMETASONE
     Dosage: NOT PROVIDED
     Dates: start: 201406, end: 2014
  37. MOMETASONE [Suspect]
     Active Substance: MOMETASONE
     Dosage: NOT PROVIDED
  38. MOMETASONE [Suspect]
     Active Substance: MOMETASONE
     Dosage: UNK
     Dates: start: 201406, end: 2014
  39. MOMETASONE [Suspect]
     Active Substance: MOMETASONE
     Dosage: NOT PROVIDED
  40. MOMETASONE [Suspect]
     Active Substance: MOMETASONE
     Dosage: NOT PROVIDED
     Dates: start: 201406, end: 2014
  41. HYDROCHLOROTHIAZIDE\VALSARTAN [Suspect]
     Active Substance: HYDROCHLOROTHIAZIDE\VALSARTAN
     Indication: Hypertension
     Dosage: NOT PROVIDED
     Dates: start: 201201
  42. HYDROCHLOROTHIAZIDE\VALSARTAN [Suspect]
     Active Substance: HYDROCHLOROTHIAZIDE\VALSARTAN
     Dosage: NOT PROVIDED
     Dates: start: 201201, end: 2012
  43. HYDROCHLOROTHIAZIDE\VALSARTAN [Suspect]
     Active Substance: HYDROCHLOROTHIAZIDE\VALSARTAN
     Dosage: NOT PROVIDED
  44. HYDROCHLOROTHIAZIDE\VALSARTAN [Suspect]
     Active Substance: HYDROCHLOROTHIAZIDE\VALSARTAN
     Dosage: NOT PROVIDED
     Dates: start: 201201, end: 2012
  45. HYDROCHLOROTHIAZIDE\VALSARTAN [Suspect]
     Active Substance: HYDROCHLOROTHIAZIDE\VALSARTAN
     Dosage: NOT PROVIDED
  46. HYDROCHLOROTHIAZIDE\VALSARTAN [Suspect]
     Active Substance: HYDROCHLOROTHIAZIDE\VALSARTAN
     Dosage: NOT PROVIDED
     Dates: start: 201201, end: 2012
  47. HYDROCHLOROTHIAZIDE\VALSARTAN [Suspect]
     Active Substance: HYDROCHLOROTHIAZIDE\VALSARTAN
     Dosage: NOT PROVIDED
  48. HYDROCHLOROTHIAZIDE\VALSARTAN [Suspect]
     Active Substance: HYDROCHLOROTHIAZIDE\VALSARTAN
     Dosage: NOT PROVIDED
     Dates: start: 201201, end: 2012
  49. CIPROFLOXACIN HYDROCHLORIDE [Suspect]
     Active Substance: CIPROFLOXACIN HYDROCHLORIDE
     Indication: Product used for unknown indication
     Dosage: NOT PROVIDED
     Dates: start: 201511, end: 2015
  50. CIPROFLOXACIN HYDROCHLORIDE [Suspect]
     Active Substance: CIPROFLOXACIN HYDROCHLORIDE
     Dosage: NOT PROVIDED
     Dates: start: 201111
  51. CIPROFLOXACIN HYDROCHLORIDE [Suspect]
     Active Substance: CIPROFLOXACIN HYDROCHLORIDE
     Dosage: NOT PROVIDED
     Dates: start: 201712
  52. CODEINE PHOSPHATE [Suspect]
     Active Substance: CODEINE PHOSPHATE
     Indication: Product used for unknown indication
     Dosage: NOT PROVIDED
     Dates: start: 201212, end: 2013
  53. CODEINE PHOSPHATE [Suspect]
     Active Substance: CODEINE PHOSPHATE
     Dosage: NOT PROVIDED
     Dates: start: 201212, end: 2013
  54. CODEINE PHOSPHATE [Suspect]
     Active Substance: CODEINE PHOSPHATE
     Dosage: NOT PROVIDED
     Dates: start: 201212, end: 2013
  55. PREDNISOLONE ACETATE [Suspect]
     Active Substance: PREDNISOLONE ACETATE
     Indication: Product used for unknown indication
     Dosage: NOT PROVIDED
     Dates: start: 201302, end: 2013
  56. PREDNISOLONE ACETATE [Suspect]
     Active Substance: PREDNISOLONE ACETATE
     Dosage: NOT PROVIDED
     Dates: start: 201302, end: 2013
  57. PREDNISOLONE ACETATE [Suspect]
     Active Substance: PREDNISOLONE ACETATE
     Dosage: NOT PROVIDED
     Dates: start: 201302, end: 2013
  58. FOSFOMYCIN TROMETHAMINE [Suspect]
     Active Substance: FOSFOMYCIN TROMETHAMINE
     Indication: Product used for unknown indication
     Dosage: NOT PROVIDED
  59. FOSFOMYCIN TROMETHAMINE [Suspect]
     Active Substance: FOSFOMYCIN TROMETHAMINE
     Dosage: NOT PROVIDED
     Dates: start: 201210, end: 2012
  60. FOSFOMYCIN TROMETHAMINE [Suspect]
     Active Substance: FOSFOMYCIN TROMETHAMINE
     Dosage: NOT PROVIDED
  61. FOSFOMYCIN TROMETHAMINE [Suspect]
     Active Substance: FOSFOMYCIN TROMETHAMINE
     Dosage: NOT PROVIDED
     Dates: start: 201210, end: 2012
  62. VALSARTAN [Suspect]
     Active Substance: VALSARTAN
     Indication: Hypertension
     Dosage: NOT PROVIDED
     Dates: start: 201705, end: 2017
  63. VALSARTAN [Suspect]
     Active Substance: VALSARTAN
     Dosage: NOT PROVIDED
  64. VALSARTAN [Suspect]
     Active Substance: VALSARTAN
     Dosage: NOT PROVIDED
     Dates: start: 201705, end: 2017
  65. VALSARTAN [Suspect]
     Active Substance: VALSARTAN
     Dosage: NOT PROVIDED
  66. VALSARTAN [Suspect]
     Active Substance: VALSARTAN
     Dosage: NOT PROVIDED
     Dates: start: 201705, end: 2017
  67. VALSARTAN [Suspect]
     Active Substance: VALSARTAN
     Dosage: NOT PROVIDED
  68. VALSARTAN [Suspect]
     Active Substance: VALSARTAN
     Dosage: NOT PROVIDED
     Dates: start: 201705, end: 2017
  69. VALSARTAN [Suspect]
     Active Substance: VALSARTAN
     Dosage: NOT PROVIDED
  70. VALSARTAN [Suspect]
     Active Substance: VALSARTAN
     Dosage: NOT PROVIDED
     Dates: start: 201705, end: 2017
  71. VALSARTAN [Suspect]
     Active Substance: VALSARTAN
     Dosage: NOT PROVIDED
  72. VALSARTAN [Suspect]
     Active Substance: VALSARTAN
     Dosage: NOT PROVIDED
     Dates: start: 201705, end: 2017
  73. VALSARTAN [Suspect]
     Active Substance: VALSARTAN
     Dosage: NOT PROVIDED
  74. VALSARTAN [Suspect]
     Active Substance: VALSARTAN
     Dosage: UNK
     Dates: start: 201705, end: 2017
  75. VALSARTAN [Suspect]
     Active Substance: VALSARTAN
     Dosage: NOT PROVIDED
  76. VALSARTAN [Suspect]
     Active Substance: VALSARTAN
     Dosage: NOT PROVIDED
     Dates: start: 201705, end: 2017
  77. METAMIZOLE [Suspect]
     Active Substance: METAMIZOLE
     Indication: Product used for unknown indication
     Dosage: NOT PROVIDED
     Dates: start: 201706, end: 2017
  78. CIPROFLOXACIN HYDROCHLORIDE [Suspect]
     Active Substance: CIPROFLOXACIN HYDROCHLORIDE
     Indication: Product used for unknown indication
     Dosage: NOT PROVIDED
     Dates: start: 201606, end: 2018
  79. AMPHOTERICIN B [Suspect]
     Active Substance: AMPHOTERICIN B
     Indication: Product used for unknown indication
     Dosage: NOT PROVIDED
     Dates: start: 201804, end: 2018
  80. EFEROX [Suspect]
     Active Substance: LEVOTHYROXINE SODIUM
     Indication: Product used for unknown indication
     Dosage: NOT PROVIDED
     Dates: start: 201212, end: 2013
  81. SPIRONOLACTONE [Suspect]
     Active Substance: SPIRONOLACTONE
     Indication: Product used for unknown indication
     Dosage: NOT PROVIDED
     Dates: start: 201702, end: 2017
  82. PREDNISOLONE [Suspect]
     Active Substance: PREDNISOLONE
     Indication: Product used for unknown indication
     Dosage: NOT PROVIDED
     Dates: start: 201505, end: 2015
  83. PREDNISOLONE [Suspect]
     Active Substance: PREDNISOLONE
     Dosage: NOT PROVIDED
     Dates: start: 201505, end: 2015
  84. PREDNISOLONE [Suspect]
     Active Substance: PREDNISOLONE
     Dosage: NOT PROVIDED
     Dates: start: 201505, end: 2015
  85. DOXAZOSIN MESYLATE [Suspect]
     Active Substance: DOXAZOSIN MESYLATE
     Indication: Product used for unknown indication
     Dosage: NOT PROVIDED
     Dates: start: 201705, end: 2017
  86. ROXITHROMYCIN [Suspect]
     Active Substance: ROXITHROMYCIN
     Indication: Product used for unknown indication
     Dosage: NOT PROVIDED
  87. ROXITHROMYCIN [Suspect]
     Active Substance: ROXITHROMYCIN
     Dosage: NOT PROVIDED
     Dates: start: 201311, end: 2013
  88. ROXITHROMYCIN [Suspect]
     Active Substance: ROXITHROMYCIN
     Dosage: NOT PROVIDED
  89. ROXITHROMYCIN [Suspect]
     Active Substance: ROXITHROMYCIN
     Dosage: NOT PROVIDED
     Dates: start: 201311, end: 2013
  90. ROXITHROMYCIN [Suspect]
     Active Substance: ROXITHROMYCIN
     Dosage: NOT PROVIDED
     Dates: start: 201111
  91. IBUPROFEN [Suspect]
     Active Substance: IBUPROFEN
     Indication: Product used for unknown indication
     Dosage: NOT PROVIDED
     Dates: start: 201807, end: 2018
  92. IBUPROFEN [Suspect]
     Active Substance: IBUPROFEN
     Dosage: NOT PROVIDED
     Dates: start: 20000720
  93. CIPROFLOXACIN HYDROCHLORIDE [Suspect]
     Active Substance: CIPROFLOXACIN HYDROCHLORIDE
     Indication: Product used for unknown indication
     Dosage: NOT PROVIDED
     Dates: start: 201712, end: 2018
  94. HYDROCORTISONE BUTYRATE [Suspect]
     Active Substance: HYDROCORTISONE BUTYRATE
     Indication: Product used for unknown indication
     Dosage: NOT PROVIDED
     Dates: start: 201406, end: 2014
  95. HYDROCORTISONE BUTYRATE [Suspect]
     Active Substance: HYDROCORTISONE BUTYRATE
     Dosage: NOT PROVIDED
     Dates: start: 201406, end: 2014
  96. HYDROCORTISONE BUTYRATE [Suspect]
     Active Substance: HYDROCORTISONE BUTYRATE
     Dosage: NOT PROVIDED
     Dates: start: 201606
  97. HYDROCORTISONE BUTYRATE [Suspect]
     Active Substance: HYDROCORTISONE BUTYRATE
     Dosage: NOT PROVIDED
     Dates: start: 201503
  98. CLINDAMYCIN HYDROCHLORIDE [Suspect]
     Active Substance: CLINDAMYCIN HYDROCHLORIDE
     Indication: Product used for unknown indication
     Dosage: NOT PROVIDED
     Dates: start: 201401, end: 2017
  99. PANTOPRAZOLE [Suspect]
     Active Substance: PANTOPRAZOLE
     Indication: Product used for unknown indication
     Dosage: NOT PROVIDED
     Dates: start: 201705, end: 2018
  100. PANTOPRAZOLE [Suspect]
     Active Substance: PANTOPRAZOLE
     Dosage: NOT PROVIDED
     Dates: start: 201705, end: 2018
  101. FLUCONAZOLE [Suspect]
     Active Substance: FLUCONAZOLE
     Indication: Product used for unknown indication
     Dosage: NOT PROVIDED
     Dates: start: 201805, end: 2018
  102. FLUCONAZOLE [Suspect]
     Active Substance: FLUCONAZOLE
     Dosage: NOT PROVIDED
  103. FLUCONAZOLE [Suspect]
     Active Substance: FLUCONAZOLE
     Dosage: NOT PROVIDED
     Dates: start: 201805, end: 2018
  104. FLUCONAZOLE [Suspect]
     Active Substance: FLUCONAZOLE
     Dosage: NOT PROVIDED
  105. FLUCONAZOLE [Suspect]
     Active Substance: FLUCONAZOLE
     Dosage: NOT PROVIDED
     Dates: start: 201805, end: 2018
  106. FLUCONAZOLE [Suspect]
     Active Substance: FLUCONAZOLE
     Dosage: NOT PROVIDED
  107. FLUCONAZOLE [Suspect]
     Active Substance: FLUCONAZOLE
     Dosage: NOT PROVIDED
     Dates: start: 2018
  108. HYDROCHLOROTHIAZIDE\VALSARTAN [Suspect]
     Active Substance: HYDROCHLOROTHIAZIDE\VALSARTAN
     Indication: Hypertension
     Dosage: NOT PROVIDED
     Dates: start: 201801, end: 2018
  109. HYDROCHLOROTHIAZIDE\VALSARTAN [Suspect]
     Active Substance: HYDROCHLOROTHIAZIDE\VALSARTAN
     Dosage: NOT PROVIDED
     Dates: start: 201205, end: 2017
  110. HYDROCHLOROTHIAZIDE\VALSARTAN [Suspect]
     Active Substance: HYDROCHLOROTHIAZIDE\VALSARTAN
     Dosage: NOT PROVIDED
     Dates: start: 201801, end: 2018
  111. HYDROCHLOROTHIAZIDE\VALSARTAN [Suspect]
     Active Substance: HYDROCHLOROTHIAZIDE\VALSARTAN
     Dosage: NOT PROVIDED
     Dates: start: 201205, end: 2017
  112. HYDROCHLOROTHIAZIDE\VALSARTAN [Suspect]
     Active Substance: HYDROCHLOROTHIAZIDE\VALSARTAN
     Dosage: NOT PROVIDED
     Dates: start: 201801, end: 2018
  113. HYDROCHLOROTHIAZIDE\VALSARTAN [Suspect]
     Active Substance: HYDROCHLOROTHIAZIDE\VALSARTAN
     Dosage: NOT PROVIDED
     Dates: start: 201205, end: 2017
  114. LERCANIDIPINE HYDROCHLORIDE [Suspect]
     Active Substance: LERCANIDIPINE HYDROCHLORIDE
     Indication: Product used for unknown indication
     Dosage: NOT PROVIDED
     Dates: start: 201702, end: 2017
  115. DOXYCYCLINE [Suspect]
     Active Substance: DOXYCYCLINE
     Indication: Product used for unknown indication
     Dosage: NOT PROVIDED
     Dates: start: 201606, end: 2016
  116. DOXYCYCLINE [Suspect]
     Active Substance: DOXYCYCLINE
     Dosage: NOT PROVIDED
  117. DOXYCYCLINE [Suspect]
     Active Substance: DOXYCYCLINE
     Dosage: NOT PROVIDED
     Dates: start: 201606, end: 2016
  118. DOXYCYCLINE [Suspect]
     Active Substance: DOXYCYCLINE
     Dosage: NOT PROVIDED
  119. CEFPODOXIME PROXETIL [Suspect]
     Active Substance: CEFPODOXIME PROXETIL
     Indication: Product used for unknown indication
     Dosage: NOT PROVIDED
     Dates: start: 201605, end: 2016
  120. DOXAZOSIN MESYLATE [Suspect]
     Active Substance: DOXAZOSIN MESYLATE
     Indication: Product used for unknown indication
     Dosage: NOT PROVIDED
     Dates: start: 201705, end: 2017
  121. DOXAZOSIN MESYLATE [Suspect]
     Active Substance: DOXAZOSIN MESYLATE
     Dosage: NOT PROVIDED
     Dates: start: 201805
  122. DOXAZOSIN MESYLATE [Suspect]
     Active Substance: DOXAZOSIN MESYLATE
     Dosage: NOT PROVIDED
     Dates: start: 201702
  123. CLINDAMYCIN HYDROCHLORIDE [Suspect]
     Active Substance: CLINDAMYCIN HYDROCHLORIDE
     Indication: Product used for unknown indication
     Dosage: NOT PROVIDED
     Dates: start: 201210, end: 2012
  124. CLINDAMYCIN HYDROCHLORIDE [Suspect]
     Active Substance: CLINDAMYCIN HYDROCHLORIDE
     Indication: Product used for unknown indication
     Dosage: NOT PROVIDED
     Dates: start: 201308, end: 2013
  125. LEVOTHYROXINE SODIUM [Suspect]
     Active Substance: LEVOTHYROXINE SODIUM
     Indication: Product used for unknown indication
     Dosage: NOT PROVIDED
     Dates: start: 201204, end: 2015
  126. LEVOTHYROXINE SODIUM [Suspect]
     Active Substance: LEVOTHYROXINE SODIUM
     Dosage: NOT PROVIDED
     Dates: start: 20000420
  127. AZITHROMYCIN [Suspect]
     Active Substance: AZITHROMYCIN
     Indication: Product used for unknown indication
     Dosage: NOT PROVIDED
     Dates: start: 201406, end: 2014
  128. CEFPODOXIME [Suspect]
     Active Substance: CEFPODOXIME
     Indication: Product used for unknown indication
     Dosage: NOT PROVIDED
     Dates: start: 201409, end: 2014
  129. CEFPODOXIME [Suspect]
     Active Substance: CEFPODOXIME
     Dosage: NOT PROVIDED
     Dates: start: 201311
  130. NEBIVOLOL [Suspect]
     Active Substance: NEBIVOLOL
     Indication: Product used for unknown indication
     Dosage: NOT PROVIDED
     Dates: start: 201402, end: 2018
  131. AMPICILLIN [Suspect]
     Active Substance: AMPICILLIN
     Indication: Product used for unknown indication
     Dosage: NOT PROVIDED
     Dates: start: 201410, end: 2014
  132. HYDROCHLOROTHIAZIDE [Suspect]
     Active Substance: HYDROCHLOROTHIAZIDE
     Indication: Product used for unknown indication
     Dosage: NOT PROVIDED
     Dates: start: 201706, end: 2017
  133. CEFPODOXIME PROXETIL [Suspect]
     Active Substance: CEFPODOXIME PROXETIL
     Indication: Product used for unknown indication
     Dosage: NOT PROVIDED
     Dates: start: 201311, end: 2013
  134. CEFPODOXIME PROXETIL [Suspect]
     Active Substance: CEFPODOXIME PROXETIL
     Dosage: NOT PROVIDED
     Dates: start: 201605
  135. HYDROCHLOROTHIAZIDE\VALSARTAN [Suspect]
     Active Substance: HYDROCHLOROTHIAZIDE\VALSARTAN
     Indication: Hypertension
     Dosage: NOT PROVIDED
  136. HYDROCHLOROTHIAZIDE\VALSARTAN [Suspect]
     Active Substance: HYDROCHLOROTHIAZIDE\VALSARTAN
     Dosage: NOT PROVIDED
     Dates: start: 201204, end: 2012
  137. HYDROCHLOROTHIAZIDE\VALSARTAN [Suspect]
     Active Substance: HYDROCHLOROTHIAZIDE\VALSARTAN
     Dosage: NOT PROVIDED
  138. HYDROCHLOROTHIAZIDE\VALSARTAN [Suspect]
     Active Substance: HYDROCHLOROTHIAZIDE\VALSARTAN
     Dosage: NOT PROVIDED
     Dates: start: 201204, end: 2012
  139. SULFAMETHOXAZOLE [Suspect]
     Active Substance: SULFAMETHOXAZOLE
     Indication: Product used for unknown indication
     Dosage: NOT PROVIDED
     Dates: start: 201702, end: 2018
  140. TRIMIPRAMINE [Suspect]
     Active Substance: TRIMIPRAMINE
     Dosage: NOT PROVIDED
     Dates: start: 201410, end: 2014
  141. SULFAMETHOXAZOLE [Suspect]
     Active Substance: SULFAMETHOXAZOLE
     Dosage: NOT PROVIDED
     Dates: start: 201702, end: 2018
  142. TRIMIPRAMINE [Suspect]
     Active Substance: TRIMIPRAMINE
     Dosage: NOT PROVIDED
     Dates: start: 201410, end: 2014
  143. CLIOQUINOL\FLUMETHASONE [Suspect]
     Active Substance: CLIOQUINOL\FLUMETHASONE
     Indication: Product used for unknown indication
     Dosage: NOT PROVIDED
     Dates: start: 201401, end: 2014
  144. LEVOTHYROXINE SODIUM [Suspect]
     Active Substance: LEVOTHYROXINE SODIUM
     Indication: Product used for unknown indication
     Dosage: NOT PROVIDED
     Dates: start: 201305, end: 2018
  145. IBUPROFEN [Suspect]
     Active Substance: IBUPROFEN
     Indication: Product used for unknown indication
     Dosage: NOT PROVIDED
     Dates: start: 201205, end: 2018
  146. SULFAMETHOXAZOLE\TRIMETHOPRIM [Suspect]
     Active Substance: SULFAMETHOXAZOLE\TRIMETHOPRIM
     Indication: Product used for unknown indication
     Dosage: NOT PROVIDED
     Dates: start: 201410, end: 2014
  147. FLUMETHASONE PIVALATE [Suspect]
     Active Substance: FLUMETHASONE PIVALATE
     Indication: Product used for unknown indication
     Dosage: NOT PROVIDED
     Dates: start: 201401
  148. CLINDAMYCIN HYDROCHLORIDE [Suspect]
     Active Substance: CLINDAMYCIN HYDROCHLORIDE
     Indication: Product used for unknown indication
     Dosage: NOT PROVIDED
     Dates: start: 201308
  149. CLINDAGEL [Suspect]
     Active Substance: CLINDAMYCIN PHOSPHATE
     Indication: Product used for unknown indication
     Dosage: NOT PROVIDED
  150. METAMIZOLE SODIUM [Suspect]
     Active Substance: METAMIZOLE SODIUM
     Indication: Product used for unknown indication
     Dosage: NOT PROVIDED
     Dates: start: 201706
  151. TRIMETHOPRIM [Suspect]
     Active Substance: TRIMETHOPRIM
     Indication: Product used for unknown indication
     Dosage: NOT PROVIDED
  152. ROXITHROMYCIN [Suspect]
     Active Substance: ROXITHROMYCIN
     Indication: Product used for unknown indication
     Dosage: NOT PROVIDED
  153. PREDNISOLONE [Suspect]
     Active Substance: PREDNISOLONE
     Indication: Product used for unknown indication
     Dosage: NOT PROVIDED
  154. MOMETASONE [Suspect]
     Active Substance: MOMETASONE
     Indication: Product used for unknown indication
     Dosage: NOT PROVIDED
     Dates: start: 201406
  155. LEVOTHYROXINE SODIUM [Suspect]
     Active Substance: LEVOTHYROXINE SODIUM
     Indication: Product used for unknown indication
     Dosage: NOT PROVIDED
     Dates: start: 201305
  156. VALSARTAN [Suspect]
     Active Substance: VALSARTAN
     Indication: Hypertension
     Dosage: NOT PROVIDED
     Dates: start: 20000120, end: 20000220
  157. VALSARTAN [Suspect]
     Active Substance: VALSARTAN
     Dosage: NOT PROVIDED
     Dates: start: 20000420
  158. VALSARTAN [Suspect]
     Active Substance: VALSARTAN
     Dosage: NOT PROVIDED
     Dates: start: 20000220
  159. VALSARTAN [Suspect]
     Active Substance: VALSARTAN
     Dosage: NOT PROVIDED
     Dates: start: 201204
  160. EUTHYROX [Suspect]
     Active Substance: LEVOTHYROXINE SODIUM
     Indication: Product used for unknown indication
     Dosage: NOT PROVIDED
     Dates: start: 20000420
  161. HYDROCHLOROTHIAZIDE\VALSARTAN [Suspect]
     Active Substance: HYDROCHLOROTHIAZIDE\VALSARTAN
     Indication: Product used for unknown indication
     Dosage: NOT PROVIDED
     Dates: start: 201204
  162. CHLORTHALIDONE [Suspect]
     Active Substance: CHLORTHALIDONE
     Indication: Product used for unknown indication
     Dosage: NOT PROVIDED
     Dates: start: 201705
  163. SULFAMETHOXAZOLE\TRIMETHOPRIM [Suspect]
     Active Substance: SULFAMETHOXAZOLE\TRIMETHOPRIM
     Indication: Product used for unknown indication
     Dosage: NOT PROVIDED
     Dates: start: 201702, end: 2018
  164. LERCANIDIPINE HYDROCHLORIDE [Suspect]
     Active Substance: LERCANIDIPINE HYDROCHLORIDE
     Indication: Product used for unknown indication
     Dosage: NOT PROVIDED
     Dates: start: 201702, end: 2017
  165. CLIOQUINOL\FLUMETHASONE [Suspect]
     Active Substance: CLIOQUINOL\FLUMETHASONE
     Indication: Product used for unknown indication
     Dosage: NOT PROVIDED
     Dates: start: 201401, end: 2014
  166. LEVOTHYROXINE SODIUM [Suspect]
     Active Substance: LEVOTHYROXINE SODIUM
     Indication: Product used for unknown indication
     Dosage: NOT PROVIDED
     Dates: start: 201305, end: 2018
  167. EUTHYROX [Suspect]
     Active Substance: LEVOTHYROXINE SODIUM
     Indication: Product used for unknown indication
     Dosage: NOT PROVIDED
     Dates: start: 201404, end: 2015
  168. HYDROCHLOROTHIAZIDE\VALSARTAN [Suspect]
     Active Substance: HYDROCHLOROTHIAZIDE\VALSARTAN
     Indication: Hypertension
     Dosage: NOT PROVIDED
     Dates: start: 201205, end: 2017

REACTIONS (2)
  - Bladder transitional cell carcinoma [Recovered/Resolved]
  - Product use in unapproved indication [Unknown]

NARRATIVE: CASE EVENT DATE: 20000320
